FAERS Safety Report 5408362-3 (Version None)
Quarter: 2007Q3

REPORT INFORMATION
  Report Type: 
  Country: None (occurrence: None)
  Receive Date: 20070803
  Receipt Date: 20070710
  Transmission Date: 20080115
  Serious: Yes (Life-Threatening)
  Sender: FDA-Public Use
  Company Number: 2007RR-08634

PATIENT
  Age: 85 Year
  Sex: Female

DRUGS (5)
  1. GABAPENTIN [Suspect]
     Dosage: 300 MG, QD, ORAL
     Route: 048
     Dates: end: 20070604
  2. ATENOLOL [Concomitant]
  3. PREDNISOLONE [Concomitant]
  4. SIMVASTATIN [Concomitant]
  5. THYROXINE        (THYROXINE) [Concomitant]

REACTIONS (2)
  - FEMORAL NECK FRACTURE [None]
  - HYPOXIA [None]
